FAERS Safety Report 9192844 (Version 1)
Quarter: 2013Q1

REPORT INFORMATION
  Report Type: Spontaneous
  Country: DE (occurrence: DE)
  Receive Date: 20130327
  Receipt Date: 20130327
  Transmission Date: 20140127
  Serious: Yes (Other)
  Sender: FDA-Public Use
  Company Number: DE-BRISTOL-MYERS SQUIBB COMPANY-18699736

PATIENT
  Age: 45 Year
  Sex: Male

DRUGS (1)
  1. LITALIR [Suspect]
     Indication: POLYCYTHAEMIA VERA
     Dosage: 3 HARD CAPS

REACTIONS (1)
  - Infertility [Unknown]
